FAERS Safety Report 12952978 (Version 1)
Quarter: 2016Q4

REPORT INFORMATION
  Report Type: Spontaneous
  Country: US (occurrence: US)
  Receive Date: 20161117
  Receipt Date: 20161117
  Transmission Date: 20170207
  Serious: Yes (Other)
  Sender: FDA-Public Use
  Company Number: US-GILEAD-2016-0243137

PATIENT
  Age: 50 Year
  Sex: Male

DRUGS (8)
  1. RITONAVIR. [Concomitant]
     Active Substance: RITONAVIR
  2. ATRIPLA [Suspect]
     Active Substance: EFAVIRENZ\EMTRICITABINE\TENOFOVIR DISOPROXIL FUMARATE
     Indication: HIV INFECTION
     Route: 065
  3. PREDNISONE. [Concomitant]
     Active Substance: PREDNISONE
  4. MARAVIROC [Concomitant]
     Active Substance: MARAVIROC
  5. AZATHIOPRINE. [Concomitant]
     Active Substance: AZATHIOPRINE
  6. STRIBILD [Suspect]
     Active Substance: COBICISTAT\ELVITEGRAVIR\EMTRICITABINE\TENOFOVIR DISOPROXIL FUMARATE
     Indication: HIV INFECTION
     Route: 065
  7. RALTEGRAVIR. [Concomitant]
     Active Substance: RALTEGRAVIR
  8. DARUNAVIR [Concomitant]
     Active Substance: DARUNAVIR

REACTIONS (1)
  - Autoimmune hepatitis [Unknown]
